FAERS Safety Report 4950579-6 (Version None)
Quarter: 2006Q1

REPORT INFORMATION
  Report Type: 
  Country: None (occurrence: None)
  Receive Date: 20060322
  Receipt Date: 20060220
  Transmission Date: 20060701
  Serious: Yes (Death, Hospitalization)
  Sender: FDA-Public Use
  Company Number: US-MERCK-0602USA04990

PATIENT
  Age: 63 Year
  Sex: Male
  Weight: 72 kg

DRUGS (5)
  1. VIOXX [Suspect]
     Indication: ARTHRITIS
     Route: 048
     Dates: start: 20030101, end: 20030301
  2. ZOCOR [Concomitant]
     Route: 065
  3. ALLEGRA [Concomitant]
     Route: 065
  4. SUDAFED 12 HOUR [Concomitant]
     Route: 065
  5. GUAIFED [Concomitant]
     Route: 065

REACTIONS (6)
  - ACUTE MYOCARDIAL INFARCTION [None]
  - ARRHYTHMIA [None]
  - BACK DISORDER [None]
  - BENIGN PROSTATIC HYPERPLASIA [None]
  - HYPERCHOLESTEROLAEMIA [None]
  - OSTEOARTHRITIS [None]
